FAERS Safety Report 6823501-5 (Version None)
Quarter: 2010Q3

REPORT INFORMATION
  Report Type: 
  Country: None (occurrence: None)
  Receive Date: 20100708
  Receipt Date: 20100701
  Transmission Date: 20110219
  Serious: Yes (Hospitalization)
  Sender: FDA-Public Use
  Company Number: US-B.I. PHARMACEUTICALS,INC./RIDGEFIELD-2010-BP-07454BP

PATIENT
  Sex: Female
  Weight: 106.2 kg

DRUGS (2)
  1. MOBIC [Suspect]
  2. BLIND (CP-690, 550) [Suspect]
     Indication: RHEUMATOID ARTHRITIS
     Dates: start: 20091008

REACTIONS (1)
  - BLOOD CREATINE INCREASED [None]
